FAERS Safety Report 10423730 (Version 1)
Quarter: 2014Q3

REPORT INFORMATION
  Report Type: Spontaneous
  Country: US (occurrence: None)
  Receive Date: 20140722
  Receipt Date: 20140722
  Transmission Date: 20150326
  Serious: No
  Sender: FDA-Public Use
  Company Number: 163-10004-14062983

PATIENT
  Age: 51 Year
  Sex: Male

DRUGS (1)
  1. OTEZLA [Suspect]
     Active Substance: APREMILAST
     Indication: PSORIATIC ARTHROPATHY
     Route: 048
     Dates: start: 20140523

REACTIONS (6)
  - Dyspepsia [None]
  - Mood swings [None]
  - Respiratory tract congestion [None]
  - Diarrhoea [None]
  - Headache [None]
  - Nausea [None]
